FAERS Safety Report 18405003 (Version 1)
Quarter: 2020Q4

REPORT INFORMATION
  Report Type: Spontaneous
  Country: US (occurrence: US)
  Receive Date: 20201020
  Receipt Date: 20201020
  Transmission Date: 20210114
  Serious: Yes (Life-Threatening, Hospitalization, Disabling)
  Sender: FDA-Public Use
  Company Number: None

PATIENT
  Age: 57 Year
  Sex: Male
  Weight: 81.65 kg

DRUGS (16)
  1. DESMOPRESSIN ACETATE NASAL SPRAY [Suspect]
     Active Substance: DESMOPRESSIN ACETATE
     Indication: DIABETES INSIPIDUS
     Dosage: ?          QUANTITY:1 DF DOSAGE FORM;?
     Route: 045
     Dates: start: 201810, end: 202008
  2. DEPAKOTE [Concomitant]
     Active Substance: DIVALPROEX SODIUM
  3. OXYCODONE [Concomitant]
     Active Substance: OXYCODONE
  4. VITAMIN D2 (ERGOCAL) [Concomitant]
  5. LEVOTHYROXINE. [Concomitant]
     Active Substance: LEVOTHYROXINE
  6. BREO ELLIPTA INHALER [Concomitant]
  7. GENOTROPIN [Concomitant]
     Active Substance: SOMATROPIN
  8. HYDROCORTISONE. [Concomitant]
     Active Substance: HYDROCORTISONE
  9. PROAIR HFA [Concomitant]
     Active Substance: ALBUTEROL SULFATE
  10. FINASATERIDE [Concomitant]
  11. GABAPENTEN [Concomitant]
     Active Substance: GABAPENTIN
  12. TESTOSTERONE. [Concomitant]
     Active Substance: TESTOSTERONE
  13. DEXILANT [Concomitant]
     Active Substance: DEXLANSOPRAZOLE
  14. CALCIUM SUPPLEMENT [Concomitant]
     Active Substance: CALCIUM
  15. DESMOPRESSIN ACETATE NASAL SPRAY [Suspect]
     Active Substance: DESMOPRESSIN ACETATE
     Indication: CRANIOCEREBRAL INJURY
     Dosage: ?          QUANTITY:1 DF DOSAGE FORM;?
     Route: 045
     Dates: start: 201810, end: 202008
  16. OXYBUTYZIN [Concomitant]

REACTIONS (3)
  - Red blood cell count increased [None]
  - Blood sodium decreased [None]
  - Blood testosterone decreased [None]
